FAERS Safety Report 5606995-2 (Version None)
Quarter: 2008Q1

REPORT INFORMATION
  Report Type: 
  Country: None (occurrence: None)
  Receive Date: 20080129
  Receipt Date: 20080128
  Transmission Date: 20080703
  Serious: Yes (Hospitalization)
  Sender: FDA-Public Use
  Company Number: CG-MERCK-0801USA05494

PATIENT
  Age: 57 Year
  Sex: Female
  Weight: 53 kg

DRUGS (1)
  1. STROMECTOL [Suspect]
     Route: 048
     Dates: start: 20070628

REACTIONS (8)
  - DIARRHOEA [None]
  - EATING DISORDER [None]
  - FATIGUE [None]
  - HYPOTENSION [None]
  - NAUSEA [None]
  - SALIVARY HYPERSECRETION [None]
  - VERTIGO [None]
  - VOMITING [None]
